FAERS Safety Report 7803215-5 (Version None)
Quarter: 2011Q4

REPORT INFORMATION
  Report Type: 
  Country: None (occurrence: None)
  Receive Date: 20111007
  Receipt Date: 20110930
  Transmission Date: 20120403
  Serious: Yes (Hospitalization, Other)
  Sender: FDA-Public Use
  Company Number: JP-CELGENEUS-087-21880-11040165

PATIENT
  Sex: Male

DRUGS (54)
  1. VELCADE [Suspect]
     Dosage: 2.129 MILLIGRAM
     Route: 041
     Dates: start: 20110113, end: 20110124
  2. DECADRON [Concomitant]
     Indication: REFRACTORY CANCER
     Dosage: 3.3 MILLIGRAM
     Route: 041
     Dates: start: 20101202, end: 20101203
  3. DECADRON [Concomitant]
     Dosage: 3.3 MILLIGRAM
     Route: 041
     Dates: start: 20101206, end: 20101207
  4. DECADRON [Concomitant]
     Dosage: 16.5 MILLIGRAM
     Route: 041
     Dates: start: 20101227, end: 20101230
  5. DECADRON [Concomitant]
     Dosage: 16.5 MILLIGRAM
     Route: 041
     Dates: start: 20110124, end: 20110125
  6. MUCOSTA [Concomitant]
     Indication: PROPHYLAXIS
     Dosage: 300 MILLIGRAM
     Route: 048
     Dates: start: 20101129, end: 20110206
  7. ISODINE [Concomitant]
     Indication: PROPHYLAXIS
     Dosage: ADEQUATE DOSE
     Route: 048
     Dates: start: 20101129, end: 20110206
  8. IRRADIATED PLATELET CONCENTRATE [Concomitant]
     Dosage: 10 UNIT
     Route: 041
     Dates: start: 20110221, end: 20110221
  9. VELCADE [Suspect]
     Indication: REFRACTORY CANCER
     Dosage: 1.3 MILLIGRAM/SQ. METER
     Route: 041
     Dates: start: 20101202, end: 20101202
  10. VELCADE [Suspect]
     Dosage: 2.129 MILLIGRAM
     Route: 041
     Dates: start: 20110207, end: 20110217
  11. DECADRON [Concomitant]
     Dosage: 16.5 MILLIGRAM
     Route: 041
     Dates: start: 20110117, end: 20110118
  12. SULFAMETHOXAZOLE [Concomitant]
     Dosage: 1 TABLET
     Route: 048
     Dates: start: 20110207, end: 20110420
  13. ZOVIRAX [Concomitant]
     Indication: PROPHYLAXIS
     Dosage: 200 MILLIGRAM
     Route: 048
     Dates: start: 20101129, end: 20110206
  14. LENDORMIN D [Concomitant]
     Dosage: .25 MILLIGRAM
     Route: 048
     Dates: start: 20101220, end: 20110206
  15. KYTRIL [Concomitant]
     Indication: PROPHYLAXIS
     Dosage: 3 MILLIGRAM
     Route: 041
     Dates: start: 20101129, end: 20101129
  16. KYTRIL [Concomitant]
     Dosage: 3 MILLIGRAM
     Route: 041
     Dates: start: 20110113, end: 20110114
  17. VELCADE [Suspect]
     Dosage: 2.129 MILLIGRAM
     Route: 041
     Dates: start: 20101220, end: 20101229
  18. DEXAMETHASONE SODIUM PHOSPHATE [Suspect]
     Indication: MULTIPLE MYELOMA
     Dosage: 13.2 MILLIGRAM
     Route: 041
     Dates: start: 20101129, end: 20101130
  19. DEXAMETHASONE SODIUM PHOSPHATE [Suspect]
     Dosage: 13.2 MILLIGRAM
     Route: 041
     Dates: start: 20101206, end: 20101207
  20. SULFAMETHOXAZOLE [Concomitant]
     Indication: PROPHYLAXIS
     Dosage: 1 TABLET
     Route: 048
     Dates: start: 20101129, end: 20110206
  21. FUNGIZONE [Concomitant]
     Indication: PROPHYLAXIS
     Dosage: 16 MILLILITER
     Route: 048
     Dates: start: 20101129, end: 20101226
  22. ITRACONAZOLE [Concomitant]
     Indication: PROPHYLAXIS
     Dosage: 20 MILLILITER
     Route: 048
     Dates: start: 20110202, end: 20110206
  23. ZOMETA [Concomitant]
     Dosage: 4 MILLIGRAM
     Route: 041
     Dates: start: 20110207, end: 20110207
  24. KYTRIL [Concomitant]
     Dosage: 3 MILLIGRAM
     Route: 041
     Dates: start: 20101206, end: 20101206
  25. KYTRIL [Concomitant]
     Dosage: 3 MILLIGRAM
     Route: 041
     Dates: start: 20101220, end: 20101229
  26. REVLIMID [Suspect]
     Indication: MULTIPLE MYELOMA
     Dosage: 25 MILLIGRAM
     Route: 048
     Dates: start: 20101129, end: 20101212
  27. REVLIMID [Suspect]
     Dosage: 25 MILLIGRAM
     Route: 048
     Dates: start: 20110113, end: 20110126
  28. DEXAMETHASONE SODIUM PHOSPHATE [Suspect]
     Indication: REFRACTORY CANCER
     Dosage: 13.2 MILLIGRAM
     Route: 041
     Dates: start: 20101202, end: 20101203
  29. MUCOSTA [Concomitant]
     Dosage: 300 MILLIGRAM
     Route: 048
     Dates: start: 20110207, end: 20110420
  30. ZOMETA [Concomitant]
     Indication: PROPHYLAXIS
     Dosage: 4 MILLIGRAM
     Route: 041
     Dates: start: 20110120, end: 20110120
  31. KYTRIL [Concomitant]
     Dosage: 3 MILLIGRAM
     Route: 041
     Dates: start: 20110120, end: 20110120
  32. REVLIMID [Suspect]
     Indication: REFRACTORY CANCER
     Dosage: 25 MILLIGRAM
     Route: 048
     Dates: start: 20101220, end: 20110102
  33. DECADRON [Concomitant]
     Dosage: 3.3 MILLIGRAM
     Route: 041
     Dates: start: 20101209, end: 20101209
  34. DECADRON [Concomitant]
     Dosage: 16.5 MILLIGRAM
     Route: 041
     Dates: start: 20110113, end: 20110114
  35. DECADRON [Concomitant]
     Dosage: 16.5 MILLIGRAM
     Route: 041
     Dates: start: 20110120, end: 20110121
  36. ASPIRIN [Concomitant]
     Dosage: 100 MILLIGRAM
     Route: 048
     Dates: start: 20110222, end: 20110420
  37. KYTRIL [Concomitant]
     Dosage: 3 MILLIGRAM
     Route: 041
     Dates: start: 20110207, end: 20110217
  38. VELCADE [Suspect]
     Dosage: 1.3 MILLIGRAM/SQ. METER
     Route: 041
     Dates: start: 20101206, end: 20101209
  39. LANSOPRAZOLE [Concomitant]
     Indication: PROPHYLAXIS
     Dosage: 30 MILLIGRAM
     Route: 048
     Dates: start: 20101129, end: 20110206
  40. IRRADIATED ERYTHROCYTE CONCENTRATE [Concomitant]
     Dosage: 2 UNIT
     Route: 041
     Dates: start: 20110221, end: 20110221
  41. REVLIMID [Suspect]
     Dosage: 25 MILLIGRAM
     Route: 048
     Dates: start: 20110207, end: 20110220
  42. DECADRON [Concomitant]
     Indication: MULTIPLE MYELOMA
     Dosage: 3.3 MILLIGRAM
     Route: 041
     Dates: start: 20101129, end: 20101130
  43. ASPIRIN [Concomitant]
     Indication: PROPHYLAXIS
     Dosage: 100 MILLIGRAM
     Route: 048
     Dates: start: 20101129, end: 20110206
  44. ZOMETA [Concomitant]
     Indication: MULTIPLE MYELOMA
     Dosage: 4 MILLIGRAM
     Route: 041
     Dates: start: 20101203, end: 20101203
  45. KYTRIL [Concomitant]
     Dosage: 3 MILLIGRAM
     Route: 041
     Dates: start: 20101202, end: 20101202
  46. KYTRIL [Concomitant]
     Dosage: 3 MILLIGRAM
     Route: 041
     Dates: start: 20101209, end: 20101209
  47. KYTRIL [Concomitant]
     Dosage: 3 MILLIGRAM
     Route: 041
     Dates: start: 20110117, end: 20110118
  48. VELCADE [Suspect]
     Indication: MULTIPLE MYELOMA
     Dosage: 1.3 MILLIGRAM/SQ. METER
     Route: 041
     Dates: start: 20101129, end: 20101129
  49. DEXAMETHASONE SODIUM PHOSPHATE [Suspect]
     Dosage: 13.2 MILLIGRAM
     Route: 041
     Dates: start: 20101209, end: 20101209
  50. DECADRON [Concomitant]
     Dosage: 16.5 MILLIGRAM
     Route: 041
     Dates: start: 20101220, end: 20101223
  51. DECADRON [Concomitant]
     Dosage: 13.2 MILLIGRAM
     Route: 041
     Dates: start: 20110207, end: 20110217
  52. DECADRON [Concomitant]
     Dosage: 3.3 MILLIGRAM
     Route: 041
     Dates: start: 20110207, end: 20110217
  53. ZOVIRAX [Concomitant]
     Dosage: 200 MILLIGRAM
     Route: 048
     Dates: start: 20110207, end: 20110420
  54. KYTRIL [Concomitant]
     Dosage: 3 MILLIGRAM
     Route: 041
     Dates: start: 20110124, end: 20110124

REACTIONS (4)
  - DIARRHOEA [None]
  - CONJUNCTIVITIS [None]
  - HYPOGAMMAGLOBULINAEMIA [None]
  - HAEMOGLOBIN DECREASED [None]
